FAERS Safety Report 12709366 (Version 1)
Quarter: 2016Q3

REPORT INFORMATION
  Report Type: Not Available
  Country: NO (occurrence: NO)
  Receive Date: 20160901
  Receipt Date: 20160901
  Transmission Date: 20161109
  Serious: Yes (Death)
  Sender: FDA-Public Use
  Company Number: NO-MUNDIPHARMA DS AND PHARMACOVIGILANCE-GBR-2016-0040252

PATIENT
  Age: 103 Year
  Sex: Male

DRUGS (1)
  1. OXYCONTIN [Suspect]
     Active Substance: OXYCODONE HYDROCHLORIDE
     Indication: PRODUCT USED FOR UNKNOWN INDICATION
     Dosage: UNK
     Route: 065

REACTIONS (4)
  - Pneumonia aspiration [Fatal]
  - Respiratory failure [Fatal]
  - Medication error [Fatal]
  - Loss of consciousness [Fatal]
